FAERS Safety Report 23271216 (Version 1)
Quarter: 2023Q4

REPORT INFORMATION
  Report Type: Spontaneous
  Country: GB (occurrence: None)
  Receive Date: 20231207
  Receipt Date: 20231207
  Transmission Date: 20240109
  Serious: Yes (Other)
  Sender: FDA-Public Use
  Company Number: GB-ROCHE-3467760

PATIENT
  Age: 75 Year
  Sex: Male

DRUGS (1)
  1. VABYSMO [Suspect]
     Active Substance: FARICIMAB\FARICIMAB-SVOA
     Indication: Diabetic retinal oedema
     Dosage: 4 - 10 WEEKLY, 6 INJECTIONS
     Route: 050
     Dates: start: 20221110, end: 20230712

REACTIONS (7)
  - Eye inflammation [Unknown]
  - Uveitis [Recovered/Resolved with Sequelae]
  - Retinopathy proliferative [Unknown]
  - Visual acuity reduced [Unknown]
  - Intraocular pressure increased [Unknown]
  - Maculopathy [Unknown]
  - Epiretinal membrane [Unknown]

NARRATIVE: CASE EVENT DATE: 20230513
